FAERS Safety Report 16855677 (Version 1)
Quarter: 2019Q3

REPORT INFORMATION
  Report Type: Spontaneous
  Country: US (occurrence: US)
  Receive Date: 20190926
  Receipt Date: 20190926
  Transmission Date: 20191005
  Serious: No
  Sender: FDA-Public Use
  Company Number: US-BEH-2019107073

PATIENT
  Age: 43 Year
  Sex: Male

DRUGS (13)
  1. PRIVIGEN [Suspect]
     Active Substance: HUMAN IMMUNOGLOBULIN G
     Dosage: 5 GRAM
     Route: 042
  2. MESTINON [Concomitant]
     Active Substance: PYRIDOSTIGMINE BROMIDE
  3. TASIGNA [Concomitant]
     Active Substance: NILOTINIB
  4. VITAMINS NOS [Concomitant]
     Active Substance: VITAMINS
  5. PRIVIGEN [Suspect]
     Active Substance: HUMAN IMMUNOGLOBULIN G
     Indication: POLYNEUROPATHY
     Dosage: 225 MILLILITER FOR 2 CONSECUTIVE DAYS, QMT
     Route: 042
     Dates: start: 20190829
  6. CELLCEPT [Concomitant]
     Active Substance: MYCOPHENOLATE MOFETIL\MYCOPHENOLATE MOFETIL HYDROCHLORIDE
  7. MIDODRINE [Concomitant]
     Active Substance: MIDODRINE
  8. TOPAMAX [Concomitant]
     Active Substance: TOPIRAMATE
  9. PRIVIGEN [Suspect]
     Active Substance: HUMAN IMMUNOGLOBULIN G
     Dosage: 20 GRAM
     Route: 042
  10. POTASSIUM [Concomitant]
     Active Substance: POTASSIUM
  11. FLUDROCORTISONE [FLUDROCORTISONE ACETATE] [Concomitant]
  12. GLYCOPYRROLATE [GLYCOPYRRONIUM BROMIDE] [Concomitant]
     Active Substance: GLYCOPYRROLATE
  13. IRON [Concomitant]
     Active Substance: IRON

REACTIONS (3)
  - Product use in unapproved indication [Unknown]
  - Pyrexia [Not Recovered/Not Resolved]
  - No adverse event [Unknown]
